FAERS Safety Report 7573558 (Version 4)
Quarter: 2015Q2

REPORT INFORMATION
  Report Type: Report from Study
  Country: US (occurrence: US)
  Receive Date: 20100906
  Receipt Date: 20150518
  Transmission Date: 20150821
  Serious: Yes (Other)
  Sender: FDA-Public Use
  Company Number: US-BIOGENIDEC-2010BI030100

PATIENT
  Age: 46 Year
  Sex: Female

DRUGS (1)
  1. AVONEX [Suspect]
     Active Substance: INTERFERON BETA-1A
     Indication: MULTIPLE SCLEROSIS
     Route: 030
     Dates: start: 20010718, end: 20090724

REACTIONS (11)
  - Influenza [Recovered/Resolved]
  - Cerebrovascular accident [Recovered/Resolved]
  - Crying [Recovered/Resolved]
  - Dysphagia [Not Recovered/Not Resolved]
  - General symptom [Recovered/Resolved]
  - Gait disturbance [Not Recovered/Not Resolved]
  - Thrombosis [Recovered/Resolved]
  - Muscular weakness [Not Recovered/Not Resolved]
  - Cardiac failure congestive [Recovered/Resolved]
  - Depressed mood [Not Recovered/Not Resolved]
  - Paraesthesia [Not Recovered/Not Resolved]

NARRATIVE: CASE EVENT DATE: 2001
